FAERS Safety Report 14866988 (Version 2)
Quarter: 2018Q2

REPORT INFORMATION
  Report Type: Report from Study
  Country: RU (occurrence: RU)
  Receive Date: 20180508
  Receipt Date: 20180615
  Transmission Date: 20180711
  Serious: Yes (Hospitalization)
  Sender: FDA-Public Use
  Company Number: RU-ASTRAZENECA-2018SE38758

PATIENT
  Age: 68 Year
  Sex: Male
  Weight: 95 kg

DRUGS (11)
  1. BRILINTA [Suspect]
     Active Substance: TICAGRELOR
     Indication: MYOCARDIAL INFARCTION
     Route: 048
     Dates: start: 201707
  2. ACECARDOL [Suspect]
     Active Substance: ASPIRIN
     Route: 065
  3. AMLODIPINE [Concomitant]
     Active Substance: AMLODIPINE BESYLATE
  4. BIFIFORM [Concomitant]
     Active Substance: BIFIDOBACTERIUM LONGUM
  5. PANCREATIN [Concomitant]
     Active Substance: PANCRELIPASE
  6. VALSACOR [Concomitant]
     Active Substance: VALSARTAN
  7. RANITIDINE. [Concomitant]
     Active Substance: RANITIDINE
     Dates: start: 20180301
  8. ISOFRA [Concomitant]
     Active Substance: FRAMYCETIN SULFATE
  9. ATORVASTATIN [Suspect]
     Active Substance: ATORVASTATIN
     Route: 065
  10. ENALAPRIL [Concomitant]
     Active Substance: ENALAPRIL
  11. PHOSPHALUGEL [Concomitant]
     Active Substance: ALUMINUM PHOSPHATE

REACTIONS (26)
  - Haematemesis [Recovered/Resolved]
  - Dizziness [Not Recovered/Not Resolved]
  - Laceration [Not Recovered/Not Resolved]
  - Nasopharyngitis [Recovered/Resolved]
  - Off label use [Unknown]
  - Colitis [Recovering/Resolving]
  - Lip swelling [Not Recovered/Not Resolved]
  - Bone disorder [Unknown]
  - Rhabdomyolysis [Recovering/Resolving]
  - Dyspnoea [Not Recovered/Not Resolved]
  - Gynaecomastia [Not Recovered/Not Resolved]
  - Lymphadenopathy [Not Recovered/Not Resolved]
  - Pharyngitis [Recovered/Resolved]
  - Pain in extremity [Unknown]
  - Bleeding time prolonged [Not Recovered/Not Resolved]
  - Contusion [Not Recovered/Not Resolved]
  - Blood pressure increased [Not Recovered/Not Resolved]
  - Asthenia [Not Recovered/Not Resolved]
  - Sinusitis [Recovered/Resolved]
  - Laryngitis [Recovered/Resolved]
  - Product use issue [Unknown]
  - Mouth haemorrhage [Not Recovered/Not Resolved]
  - Swollen tongue [Not Recovered/Not Resolved]
  - Abdominal pain upper [Not Recovered/Not Resolved]
  - Bronchitis [Recovered/Resolved]
  - Myalgia [Unknown]

NARRATIVE: CASE EVENT DATE: 201707
